FAERS Safety Report 7042946-4 (Version None)
Quarter: 2010Q4

REPORT INFORMATION
  Report Type: 
  Country: None (occurrence: None)
  Receive Date: 20101013
  Receipt Date: 20100628
  Transmission Date: 20110411
  Serious: No
  Sender: FDA-Public Use
  Company Number: US-ASTRAZENECA-2010SE30237

PATIENT
  Age: 28781 Day
  Sex: Female
  Weight: 73.5 kg

DRUGS (2)
  1. SYMBICORT [Suspect]
     Dosage: 160/4.5 UG 2 PUFFS
     Route: 055
     Dates: start: 20100614
  2. SPIRIVA [Concomitant]

REACTIONS (1)
  - SOMNOLENCE [None]
